FAERS Safety Report 5100534-0 (Version None)
Quarter: 2006Q3

REPORT INFORMATION
  Report Type: 
  Country: None (occurrence: None)
  Receive Date: 20060909
  Receipt Date: 20060904
  Transmission Date: 20061208
  Serious: Yes (Hospitalization)
  Sender: FDA-Public Use
  Company Number: FR-ABBOTT-06P-056-0342879-00

PATIENT
  Age: 65 Year
  Sex: Female
  Weight: 62 kg

DRUGS (6)
  1. LEVOTHYROXINE SODIUM [Suspect]
     Indication: THYROIDECTOMY
     Route: 048
     Dates: start: 20010101
  2. ISOPTIN [Suspect]
     Indication: DRUG USE FOR UNKNOWN INDICATION
     Route: 048
     Dates: start: 20010101, end: 20060331
  3. SPIRONOLACTONE [Suspect]
     Indication: DRUG USE FOR UNKNOWN INDICATION
     Route: 048
     Dates: start: 20010101, end: 20060222
  4. ALTIZIDE [Suspect]
     Indication: DRUG USE FOR UNKNOWN INDICATION
     Route: 048
     Dates: start: 20010101, end: 20060222
  5. DIOSMINE/HESPERIDINE [Suspect]
     Indication: DRUG USE FOR UNKNOWN INDICATION
     Dates: start: 20050301, end: 20060201
  6. DIOSMIN [Suspect]
     Indication: DRUG USE FOR UNKNOWN INDICATION
     Dates: start: 20060201, end: 20060622

REACTIONS (5)
  - HYPERAESTHESIA [None]
  - LEUKOPENIA [None]
  - NERVOUS SYSTEM DISORDER [None]
  - NEURALGIA [None]
  - NEUTROPENIA [None]
